FAERS Safety Report 10186464 (Version 1)
Quarter: 2014Q2

REPORT INFORMATION
  Report Type: Spontaneous
  Country: US (occurrence: US)
  Receive Date: 20140521
  Receipt Date: 20140521
  Transmission Date: 20141212
  Serious: No
  Sender: FDA-Public Use
  Company Number: US-ASTRAZENECA-2013SE76587

PATIENT
  Age: 81 Year
  Sex: Female
  Weight: 72.6 kg

DRUGS (13)
  1. PULMICORT FLEXHALER [Suspect]
     Indication: ASTHMA
     Route: 055
     Dates: start: 2013
  2. NEXIUM [Suspect]
     Indication: HIATUS HERNIA
     Route: 048
  3. ALDACTONE [Concomitant]
     Dosage: 12.5 MG 1/2 TABLET DAILY
     Route: 048
     Dates: start: 2010
  4. COREG [Concomitant]
     Indication: CARDIAC DISORDER
     Route: 048
     Dates: start: 2010
  5. DIOVAN [Concomitant]
     Route: 048
     Dates: start: 2010
  6. ASPIRIN [Concomitant]
     Indication: CARDIAC DISORDER
     Route: 048
     Dates: start: 2010
  7. LASIX [Concomitant]
     Route: 048
     Dates: start: 2010
  8. PAXIL [Concomitant]
     Indication: ANXIETY
     Route: 048
     Dates: start: 2010
  9. ZETIA [Concomitant]
     Indication: BLOOD CHOLESTEROL INCREASED
     Route: 048
  10. SINGULAIR [Concomitant]
     Indication: MULTIPLE ALLERGIES
     Route: 048
  11. THIAMIN [Concomitant]
     Route: 048
  12. LIPITOR [Concomitant]
     Route: 048
  13. VITAMIN D3 [Concomitant]
     Dosage: ONE TABLET QOD
     Route: 048

REACTIONS (6)
  - Diarrhoea [Not Recovered/Not Resolved]
  - Decreased activity [Not Recovered/Not Resolved]
  - Weight increased [Not Recovered/Not Resolved]
  - Renal impairment [Not Recovered/Not Resolved]
  - Back pain [Not Recovered/Not Resolved]
  - Off label use [Not Recovered/Not Resolved]
